FAERS Safety Report 5149313-9 (Version None)
Quarter: 2006Q4

REPORT INFORMATION
  Report Type: 
  Country: None (occurrence: None)
  Receive Date: 20061113
  Receipt Date: 20061107
  Transmission Date: 20070319
  Serious: Yes (Hospitalization, Congenital Anomaly, Other)
  Sender: FDA-Public Use
  Company Number: GB-GLAXOSMITHKLINE-B0446200A

PATIENT
  Age: 5 Week
  Sex: Female
  Weight: 2.3 kg

DRUGS (2)
  1. PAROXETINE HCL [Suspect]
     Dosage: 40MG PER DAY
  2. OLANZAPINE [Suspect]
     Dosage: 10MG PER DAY

REACTIONS (6)
  - AGITATION NEONATAL [None]
  - CONGENITAL ANOMALY [None]
  - DRUG EXPOSURE DURING PREGNANCY [None]
  - DRUG WITHDRAWAL SYNDROME [None]
  - HYPOGLYCAEMIA [None]
  - SUPERNUMERARY NIPPLE [None]
